FAERS Safety Report 8793851 (Version 3)
Quarter: 2012Q4

REPORT INFORMATION
  Report Type: 
  Country: JP (occurrence: JP)
  Receive Date: 20120917
  Receipt Date: 20121004
  Transmission Date: 20130627
  Serious: Yes (Life-Threatening)
  Sender: FDA-Public Use
  Company Number: JP-JNJFOC-20120906550

PATIENT

DRUGS (5)
  1. TRAMCET [Suspect]
     Indication: PAIN
     Dosage: 2 tablets per day
     Route: 048
  2. TRAMCET [Suspect]
     Indication: PAIN
     Route: 048
  3. WARFARIN [Interacting]
     Indication: PRODUCT USED FOR UNKNOWN INDICATION
     Route: 048
  4. PREGABALIN [Concomitant]
     Route: 048
  5. UNKNOWN MEDICATION [Concomitant]
     Indication: DIURETIC THERAPY
     Route: 065

REACTIONS (2)
  - Renal failure acute [Unknown]
  - Drug interaction [Unknown]
